FAERS Safety Report 6612792-1 (Version None)
Quarter: 2010Q1

REPORT INFORMATION
  Report Type: 
  Country: None (occurrence: None)
  Receive Date: 20100303
  Receipt Date: 20100217
  Transmission Date: 20100710
  Serious: Yes (Hospitalization, Other)
  Sender: FDA-Public Use
  Company Number: US-ELI_LILLY_AND_COMPANY-US200908003454

PATIENT
  Sex: Female

DRUGS (12)
  1. FORTEO [Suspect]
     Indication: OSTEOPOROSIS
     Dosage: 20 UG, DAILY (1/D)
     Dates: start: 20090301, end: 20090801
  2. FORTEO [Suspect]
     Dates: start: 20100101, end: 20100129
  3. SYNTHROID [Concomitant]
     Dosage: 0.25 MG, EACH MORNING
  4. PREVACID [Concomitant]
     Dosage: UNK, EACH MORNING
  5. ATENOLOL [Concomitant]
     Indication: HYPERTENSION
     Dosage: 100 MG, EACH EVENING
  6. BENICAR [Concomitant]
     Dosage: 40 MG, UNK
  7. AMLODIPINE [Concomitant]
     Dosage: 5 MG, UNK
  8. ADVAIR DISKUS 100/50 [Concomitant]
     Indication: ASTHMA
     Dosage: UNK, DAILY (1/D)
     Route: 055
  9. QUININE SULFATE [Concomitant]
     Dosage: 375 MG, QOD
  10. MAGNESIUM [Concomitant]
     Indication: NEURALGIA
  11. CALCIUM CITRATE W/VITAMIN D NOS [Concomitant]
     Dosage: 630 MG, 2/D
  12. ASPIRIN [Concomitant]
     Dosage: 81 MG, DAILY (1/D)

REACTIONS (1)
  - TRANSIENT ISCHAEMIC ATTACK [None]
